FAERS Safety Report 7426499-4 (Version None)
Quarter: 2011Q2

REPORT INFORMATION
  Report Type: 
  Country: None (occurrence: None)
  Receive Date: 20110420
  Receipt Date: 20110408
  Transmission Date: 20111010
  Serious: Yes (Hospitalization)
  Sender: FDA-Public Use
  Company Number: US-ACTELION-A-NJ2011-45734

PATIENT

DRUGS (8)
  1. XANAX [Concomitant]
  2. TADALAFIL [Concomitant]
  3. TRACLEER [Suspect]
     Indication: PULMONARY ARTERIAL HYPERTENSION
     Dosage: 125 MG, BID
     Route: 048
     Dates: start: 20110207
  4. ASPIRIN [Concomitant]
  5. TRACLEER [Suspect]
     Dosage: 62.5 MG, BID
     Route: 048
     Dates: start: 20110131, end: 20110206
  6. METOPROLOL [Concomitant]
  7. LISINOPRIL [Concomitant]
  8. OXYCODONE HCL [Concomitant]

REACTIONS (5)
  - HYPOTENSION [None]
  - FLUSHING [None]
  - DIZZINESS [None]
  - ANXIETY [None]
  - HYPERTENSION [None]
